FAERS Safety Report 7932877-7 (Version None)
Quarter: 2011Q4

REPORT INFORMATION
  Report Type: 
  Country: None (occurrence: None)
  Receive Date: 20111122
  Receipt Date: 20111114
  Transmission Date: 20120403
  Serious: Yes (Hospitalization)
  Sender: FDA-Public Use
  Company Number: JP-ASTELLAS-2011JP008344

PATIENT
  Age: 35 Year
  Sex: Male
  Weight: 64 kg

DRUGS (8)
  1. EPADEL [Concomitant]
     Dosage: UNK
     Route: 048
  2. TACROLIMUS [Suspect]
     Indication: LUPUS NEPHRITIS
     Dosage: 3 MG, UNKNOWN/D
     Route: 048
     Dates: start: 20080109, end: 20081225
  3. GASMOTIN [Concomitant]
     Dosage: 15 MG, UNKNOWN/D
     Route: 048
  4. GASCON [Concomitant]
     Dosage: UNK
     Route: 048
  5. PREDNISOLONE [Concomitant]
     Indication: LUPUS NEPHRITIS
     Dosage: 15 MG, UNKNOWN/D
     Route: 048
  6. PREDNISOLONE [Concomitant]
     Dosage: 30 MG, UNKNOWN/D
     Route: 048
     Dates: start: 20081226
  7. WARFARIN SODIUM [Concomitant]
     Indication: LUPUS NEPHRITIS
     Dosage: 2 MG, UNKNOWN/D
     Route: 048
  8. PREDNISOLONE [Concomitant]
     Dosage: 15 MG, UNKNOWN/D
     Route: 048
     Dates: start: 20080929, end: 20081225

REACTIONS (1)
  - NEPHROTIC SYNDROME [None]
